FAERS Safety Report 18752844 (Version 1)
Quarter: 2021Q1

REPORT INFORMATION
  Report Type: Spontaneous
  Country: US (occurrence: US)
  Receive Date: 20210118
  Receipt Date: 20210118
  Transmission Date: 20210419
  Serious: Yes (Other)
  Sender: FDA-Public Use
  Company Number: NVSC2021US007304

PATIENT
  Age: 74 Year
  Sex: Female

DRUGS (2)
  1. LUTATHERA [Suspect]
     Active Substance: LUTETIUM OXODOTREOTIDE LU-177
     Dosage: 200 MCI (EVERY 8 WEEKS X 4 DOSES)
     Route: 042
  2. LUTATHERA [Suspect]
     Active Substance: LUTETIUM OXODOTREOTIDE LU-177
     Indication: GASTROENTEROPANCREATIC NEUROENDOCRINE TUMOUR DISEASE
     Dosage: 200 MBQ (OTHER)
     Route: 042
     Dates: start: 20200701

REACTIONS (3)
  - Glomerular filtration rate decreased [Unknown]
  - Renal impairment [Unknown]
  - Ascites [Unknown]
